FAERS Safety Report 9237928 (Version 4)
Quarter: 2013Q2

REPORT INFORMATION
  Report Type: Spontaneous
  Country: US (occurrence: US)
  Receive Date: 20130418
  Receipt Date: 20130625
  Transmission Date: 20140414
  Serious: Yes (Other)
  Sender: FDA-Public Use
  Company Number: US-TEVA-398039USA

PATIENT
  Sex: Female

DRUGS (10)
  1. NORTRIPTYLINE [Suspect]
     Dosage: 50 MILLIGRAM DAILY;
  2. FESOTERODINE [Suspect]
     Indication: URINARY INCONTINENCE
     Dosage: TOOK X 2 WEEKS
     Dates: start: 201210, end: 201211
  3. SERTRALINE [Suspect]
     Indication: DEPRESSION
     Dosage: 50 MILLIGRAM DAILY;
  4. DONEPEZIL HYDROCHLORIDE [Suspect]
     Indication: DEMENTIA
     Dosage: 10 MILLIGRAM DAILY; ONE YEAR
  5. MEMANTINE HYDROCHLORIDE [Suspect]
     Indication: DEMENTIA
     Dosage: 20 MILLIGRAM DAILY; ONE YEAR
  6. SOLIFENACIN [Suspect]
     Dosage: 1 DOSAGE FORMS DAILY;
  7. LITHIUM [Suspect]
     Dosage: 300 MILLIGRAM DAILY;
  8. AMLODIPINE [Suspect]
     Dosage: 2.5 MILLIGRAM DAILY;
  9. ACETYLSALICYLIC ACID [Suspect]
     Dosage: ALTERNATE DAY
  10. LOVASTATIN [Concomitant]
     Indication: BLOOD CHOLESTEROL INCREASED
     Dosage: LONG TERM

REACTIONS (2)
  - Dementia Alzheimer^s type [Recovered/Resolved]
  - Drug ineffective [Unknown]
